FAERS Safety Report 18295627 (Version 1)
Quarter: 2020Q3

REPORT INFORMATION
  Report Type: Spontaneous
  Country: US (occurrence: US)
  Receive Date: 20200922
  Receipt Date: 20200922
  Transmission Date: 20201103
  Serious: No
  Sender: FDA-Public Use
  Company Number: US-AMARIN PHARMA, INC.-2020AMR000162

PATIENT
  Age: 39 Year
  Sex: Male
  Weight: 102.15 kg

DRUGS (7)
  1. PROPANOLOL [Concomitant]
     Active Substance: PROPRANOLOL HYDROCHLORIDE
     Indication: BLOOD PRESSURE ABNORMAL
     Route: 048
  2. BABY ASPIRIN [Concomitant]
     Active Substance: ASPIRIN
     Indication: PRODUCT USED FOR UNKNOWN INDICATION
     Route: 048
  3. ISOSORBIDE. [Concomitant]
     Active Substance: ISOSORBIDE
     Indication: CARDIAC DISORDER
     Route: 048
  4. CLOPIDOGREL [Concomitant]
     Active Substance: CLOPIDOGREL BISULFATE
     Indication: BLOOD PRESSURE ABNORMAL
     Route: 048
  5. ATORVASTATIN [Concomitant]
     Active Substance: ATORVASTATIN
     Indication: BLOOD CHOLESTEROL ABNORMAL
     Route: 048
  6. VASCEPA [Suspect]
     Active Substance: ICOSAPENT ETHYL
     Indication: BLOOD TRIGLYCERIDES ABNORMAL
     Route: 048
     Dates: start: 2018
  7. RANEXA [Concomitant]
     Active Substance: RANOLAZINE
     Indication: CARDIAC DISORDER
     Route: 048

REACTIONS (4)
  - Product adhesion issue [Unknown]
  - Retching [Unknown]
  - Product odour abnormal [Unknown]
  - Product physical issue [Unknown]
